FAERS Safety Report 23249859 (Version 1)
Quarter: 2023Q4

REPORT INFORMATION
  Report Type: Spontaneous
  Country: US (occurrence: US)
  Receive Date: 20231201
  Receipt Date: 20231201
  Transmission Date: 20240110
  Serious: No
  Sender: FDA-Public Use
  Company Number: US-ALVOGEN-2023092111

PATIENT
  Sex: Female

DRUGS (1)
  1. LEVOTHYROXINE [Suspect]
     Active Substance: LEVOTHYROXINE
     Indication: Product used for unknown indication
     Dosage: EXPIRATION DATE: UU-JUN-2024?STRENGTH: 75 MCG

REACTIONS (3)
  - Oropharyngeal discomfort [Unknown]
  - Headache [Unknown]
  - Vomiting [Unknown]
